FAERS Safety Report 11243366 (Version 1)
Quarter: 2015Q3

REPORT INFORMATION
  Report Type: Spontaneous
  Country: BE (occurrence: BE)
  Receive Date: 20150707
  Receipt Date: 20150707
  Transmission Date: 20151125
  Serious: Yes (Death, Hospitalization)
  Sender: FDA-Public Use
  Company Number: BE-MYLANLABS-2015M1021971

PATIENT

DRUGS (2)
  1. ASPIRIN                            /00002701/ [Suspect]
     Active Substance: ASPIRIN
     Indication: INTERMITTENT CLAUDICATION
     Dosage: LOW DOSE
     Route: 065
     Dates: start: 2005
  2. DICLOFENAC [Suspect]
     Active Substance: DICLOFENAC
     Indication: ARTHRALGIA
     Dosage: 50 MG, TID
     Route: 065
     Dates: start: 2005

REACTIONS (4)
  - Intestine transplant rejection [Fatal]
  - Shock [Unknown]
  - Renal impairment [Unknown]
  - Graft loss [Fatal]
